FAERS Safety Report 18880029 (Version 2)
Quarter: 2021Q1

REPORT INFORMATION
  Report Type: Report from Study
  Country: GB (occurrence: GB)
  Receive Date: 20210211
  Receipt Date: 20210326
  Transmission Date: 20210420
  Serious: Yes (Other)
  Sender: FDA-Public Use
  Company Number: NVSC2021GB014609

PATIENT
  Sex: Male

DRUGS (2)
  1. OMNITROPE [Suspect]
     Active Substance: SOMATROPIN
     Indication: PRODUCT USED FOR UNKNOWN INDICATION
     Dosage: 2.2 MG, QD
     Route: 065
     Dates: start: 20201209
  2. OMNITROPE [Suspect]
     Active Substance: SOMATROPIN
     Dosage: 2.2 MG, QD
     Route: 058
     Dates: start: 20201219

REACTIONS (6)
  - Incorrect dose administered [Unknown]
  - Injection site haemorrhage [Recovering/Resolving]
  - Contusion [Unknown]
  - Needle issue [Unknown]
  - Fear of injection [Unknown]
  - Product dose omission issue [Unknown]
